FAERS Safety Report 7807559 (Version 6)
Quarter: 2012Q4

REPORT INFORMATION
  Report Type: 
  Country: US (occurrence: US)
  Receive Date: 20110210
  Receipt Date: 20121019
  Transmission Date: 20130627
  Serious: Yes (Hospitalization, Disabling, Other)
  Sender: FDA-Public Use
  Company Number: US-009507513-1102USA00900

PATIENT

DRUGS (3)
  1. FOSAMAX [Suspect]
     Indication: BONE DENSITY DECREASED
     Dosage: oral 10 mg, qd
     Route: 048
     Dates: start: 19950522
  2. FOSAMAX [Suspect]
     Indication: OSTEOPENIA
     Dosage: 70 mg, QW
     Route: 048
     Dates: start: 2001, end: 20031203
  3. BONIVA [Suspect]
     Dosage: 150 mg, QM
     Route: 048
     Dates: start: 20061205, end: 20100304

REACTIONS (54)
  - Anaemia postoperative [Recovering/Resolving]
  - Osteonecrosis [Unknown]
  - Rotator cuff syndrome [Unknown]
  - Shoulder operation [Unknown]
  - Hyponatraemia [Recovered/Resolved]
  - Hypokalaemia [Recovered/Resolved]
  - Femur fracture [Unknown]
  - Osteonecrosis of jaw [Unknown]
  - Dental caries [Unknown]
  - Hyperlipidaemia [Not Recovered/Not Resolved]
  - Lumbar radiculopathy [Not Recovered/Not Resolved]
  - Body height decreased [Unknown]
  - Spondylolisthesis [Unknown]
  - Spinal column stenosis [Unknown]
  - Rhinitis allergic [Unknown]
  - Abnormal loss of weight [Unknown]
  - Osteoporosis [Unknown]
  - Tooth disorder [Unknown]
  - Device failure [Unknown]
  - Osteoarthritis [Unknown]
  - Gait disturbance [Unknown]
  - Knee deformity [Unknown]
  - Spinal osteoarthritis [Unknown]
  - Tendonitis [Unknown]
  - Road traffic accident [Unknown]
  - Bursitis [Unknown]
  - Adverse event [Unknown]
  - Bursitis [Unknown]
  - Insomnia [Unknown]
  - Contusion [Unknown]
  - Fatigue [Unknown]
  - Lumbar spinal stenosis [Unknown]
  - Adverse drug reaction [Unknown]
  - Adverse drug reaction [Unknown]
  - Venous insufficiency [Unknown]
  - Pain [Unknown]
  - Metrorrhagia [Unknown]
  - Fibrocystic breast disease [Unknown]
  - Pollakiuria [Unknown]
  - Oropharyngeal pain [Unknown]
  - Gastroenteritis bacterial [Recovered/Resolved]
  - Pain in extremity [Unknown]
  - Pain in extremity [Unknown]
  - Oedema peripheral [Unknown]
  - Arthralgia [Unknown]
  - Muscle spasms [Unknown]
  - Dysphagia [Unknown]
  - Neck pain [Unknown]
  - Gastrooesophageal reflux disease [Unknown]
  - Muscle spasms [Unknown]
  - Pain in jaw [Unknown]
  - Dyspepsia [Unknown]
  - Arthralgia [Unknown]
  - Alopecia [Unknown]
